FAERS Safety Report 4283497-X (Version None)
Quarter: 2004Q1

REPORT INFORMATION
  Report Type: 
  Country: None (occurrence: None)
  Receive Date: 20040115
  Receipt Date: 20031024
  Transmission Date: 20041129
  Serious: Yes (Death)
  Sender: FDA-Public Use
  Company Number: US-JNJFOC-20031005965

PATIENT
  Age: 68 Year
  Sex: Female

DRUGS (1)
  1. DOXIL [Suspect]
     Indication: ENDOMETRIAL CANCER
     Dosage: 74 MG, INTRAVENOUS, X5 CYCLES
     Route: 042
     Dates: end: 20030806

REACTIONS (1)
  - MALIGNANT NEOPLASM PROGRESSION [None]
